FAERS Safety Report 24556093 (Version 2)
Quarter: 2024Q4

REPORT INFORMATION
  Report Type: Other
  Country: US (occurrence: US)
  Receive Date: 20241028
  Receipt Date: 20241104
  Transmission Date: 20250114
  Serious: No
  Sender: TRAVERE THERAPEUTICS
  Company Number: US-TRAVERE-2024TVT01009

PATIENT
  Sex: Male

DRUGS (1)
  1. FILSPARI [Suspect]
     Active Substance: SPARSENTAN
     Indication: IgA nephropathy
     Dosage: SWITCHED TAKING THE MEDICATION TO AT NIGHT INSTEAD.?THE PHYSICIAN SUGGESTED THAT AFTER 200 MG, THE P
     Route: 048

REACTIONS (1)
  - Dizziness [Unknown]
